FAERS Safety Report 4902772-6 (Version None)
Quarter: 2006Q1

REPORT INFORMATION
  Report Type: 
  Country: None (occurrence: None)
  Receive Date: 20060207
  Receipt Date: 20051206
  Transmission Date: 20060701
  Serious: Yes (Life-Threatening, Hospitalization)
  Sender: FDA-Public Use
  Company Number: US-GLAXOSMITHKLINE-A0584826A

PATIENT
  Age: 35 Year
  Sex: Male
  Weight: 68.7 kg

DRUGS (16)
  1. ABACAVIR SULFATE + LAMIVUDINE [Suspect]
     Indication: HIV INFECTION
     Dosage: 1TAB PER DAY
     Route: 048
     Dates: start: 20051025, end: 20051125
  2. ATAZANAVIR [Suspect]
     Indication: HIV INFECTION
     Dosage: 300MG PER DAY
     Route: 048
     Dates: start: 20051025, end: 20051125
  3. RITONAVIR [Suspect]
     Indication: HIV INFECTION
     Dosage: 100MG PER DAY
     Route: 048
     Dates: start: 20051025, end: 20051125
  4. ZITHROMAX [Concomitant]
     Dates: start: 20050727
  5. BACTRIM DS [Concomitant]
     Dates: start: 20050812
  6. FLUCONAZOLE [Concomitant]
     Dates: start: 20051003
  7. FAMVIR [Concomitant]
     Dates: start: 20050727
  8. ATARAX [Concomitant]
     Dates: start: 20050912
  9. BACTROBAN [Concomitant]
     Dates: start: 20050912
  10. CUTIVATE [Concomitant]
     Dates: start: 20050912
  11. NIZORAL [Concomitant]
     Dates: start: 20050912
  12. VITAMIN B-12 [Concomitant]
     Dates: start: 19880101
  13. MULTI-VITAMIN [Concomitant]
     Dates: start: 20050727
  14. ASCORBIC ACID [Concomitant]
     Dates: start: 20050727
  15. LUNESTA [Concomitant]
     Dates: start: 20051119, end: 20051120
  16. MOTRIN [Concomitant]
     Dates: start: 20051103

REACTIONS (12)
  - CHILLS [None]
  - DEHYDRATION [None]
  - DRUG HYPERSENSITIVITY [None]
  - DYSPNOEA [None]
  - FATIGUE [None]
  - HYPOTENSION [None]
  - IMMUNE RECONSTITUTION SYNDROME [None]
  - MALAISE [None]
  - MYCOBACTERIUM AVIUM COMPLEX INFECTION [None]
  - NAUSEA [None]
  - PYREXIA [None]
  - TACHYCARDIA [None]
